FAERS Safety Report 12005128 (Version 3)
Quarter: 2016Q1

REPORT INFORMATION
  Report Type: Report from Study
  Country: US (occurrence: US)
  Receive Date: 20160204
  Receipt Date: 20160318
  Transmission Date: 20160526
  Serious: Yes (Hospitalization, Other)
  Sender: FDA-Public Use
  Company Number: US-ARIAD PHARMACEUTICALS, INC-2016US006085

PATIENT
  Age: 63 Year
  Sex: Male
  Weight: 62 kg

DRUGS (2)
  1. PONATINIB [Suspect]
     Active Substance: PONATINIB
     Indication: ADENOCARCINOMA PANCREAS
     Dosage: 45 MG, QD
     Route: 048
     Dates: start: 20160119, end: 20160201
  2. PONATINIB [Suspect]
     Active Substance: PONATINIB
     Indication: PANCREATIC CARCINOMA METASTATIC

REACTIONS (2)
  - Orthopnoea [Recovered/Resolved]
  - Embolism [Not Recovered/Not Resolved]

NARRATIVE: CASE EVENT DATE: 20160202
